FAERS Safety Report 6845651-X (Version None)
Quarter: 2010Q3

REPORT INFORMATION
  Report Type: 
  Country: None (occurrence: None)
  Receive Date: 20100715
  Receipt Date: 20070821
  Transmission Date: 20110219
  Serious: No
  Sender: FDA-Public Use
  Company Number: US-PFIZER INC-2007071108

PATIENT
  Sex: Female
  Weight: 86.2 kg

DRUGS (4)
  1. CHANTIX [Suspect]
     Indication: SMOKING CESSATION THERAPY
     Dates: start: 20070815
  2. CONTRACEPTIVE, UNSPECIFIED [Concomitant]
  3. NEXIUM [Concomitant]
  4. PLAQUENIL [Concomitant]

REACTIONS (1)
  - DRUG SCREEN POSITIVE [None]
